FAERS Safety Report 8614629 (Version 2)
Quarter: 2012Q4

REPORT INFORMATION
  Report Type: Report from Study
  Country: DE (occurrence: DE)
  Receive Date: 20120614
  Receipt Date: 20120919
  Transmission Date: 20130627
  Serious: Yes (Death)
  Sender: FDA-Public Use
  Company Number: DE-ROCHE-1076351

PATIENT
  Age: 61 Year
  Sex: Female
  Weight: 63 kg

DRUGS (5)
  1. AVASTIN [Suspect]
     Indication: COLON CANCER METASTATIC
     Route: 042
     Dates: start: 20090720
  2. FLUOROURACIL [Suspect]
     Indication: COLON CANCER METASTATIC
     Route: 042
     Dates: start: 20090720
  3. FLUOROURACIL [Suspect]
     Route: 042
     Dates: start: 20090722
  4. FOLINIC ACID [Concomitant]
     Indication: COLON CANCER METASTATIC
     Route: 042
     Dates: start: 20090720
  5. IRINOTECAN HYDROCHLORIDE [Concomitant]
     Indication: COLON CANCER METASTATIC
     Route: 042
     Dates: start: 20090720

REACTIONS (2)
  - Cardiac failure [Fatal]
  - Pulmonary embolism [Fatal]
